FAERS Safety Report 26187091 (Version 1)
Quarter: 2025Q4

REPORT INFORMATION
  Report Type: Spontaneous
  Country: EU (occurrence: EU)
  Receive Date: 20251222
  Receipt Date: 20251222
  Transmission Date: 20260118
  Serious: Yes (Hospitalization)
  Sender: MYLAN
  Company Number: None

PATIENT
  Age: 86 Year
  Sex: Female
  Weight: 57 kg

DRUGS (52)
  1. DILTIAZEM [Interacting]
     Active Substance: DILTIAZEM
     Indication: Hypertension
     Dosage: 600 MILLIGRAM, QD
     Route: 061
     Dates: end: 20250911
  2. DILTIAZEM [Interacting]
     Active Substance: DILTIAZEM
     Dosage: 600 MILLIGRAM, QD
     Route: 048
     Dates: end: 20250911
  3. DILTIAZEM [Interacting]
     Active Substance: DILTIAZEM
     Dosage: 600 MILLIGRAM, QD
     Route: 048
     Dates: end: 20250911
  4. DILTIAZEM [Interacting]
     Active Substance: DILTIAZEM
     Dosage: 600 MILLIGRAM, QD
     Route: 061
     Dates: end: 20250911
  5. ELIQUIS [Interacting]
     Active Substance: APIXABAN
     Indication: Anticoagulant therapy
     Dosage: 5 MILLIGRAM, QD
     Route: 061
     Dates: end: 20250911
  6. ELIQUIS [Interacting]
     Active Substance: APIXABAN
     Dosage: 5 MILLIGRAM, QD
     Route: 048
     Dates: end: 20250911
  7. ELIQUIS [Interacting]
     Active Substance: APIXABAN
     Dosage: 5 MILLIGRAM, QD
     Route: 048
     Dates: end: 20250911
  8. ELIQUIS [Interacting]
     Active Substance: APIXABAN
     Dosage: 5 MILLIGRAM, QD
     Route: 061
     Dates: end: 20250911
  9. LANSOPRAZOLE [Concomitant]
     Active Substance: LANSOPRAZOLE
     Dosage: UNK
  10. LANSOPRAZOLE [Concomitant]
     Active Substance: LANSOPRAZOLE
     Dosage: UNK
     Route: 065
  11. LANSOPRAZOLE [Concomitant]
     Active Substance: LANSOPRAZOLE
     Dosage: UNK
     Route: 065
  12. LANSOPRAZOLE [Concomitant]
     Active Substance: LANSOPRAZOLE
     Dosage: UNK
  13. SERETIDE [Concomitant]
     Active Substance: FLUTICASONE PROPIONATE\SALMETEROL XINAFOATE
     Dosage: STRENGTH 500/50 MICROGRAM/DOSE
  14. SERETIDE [Concomitant]
     Active Substance: FLUTICASONE PROPIONATE\SALMETEROL XINAFOATE
     Dosage: STRENGTH 500/50 MICROGRAM/DOSE
     Route: 065
  15. SERETIDE [Concomitant]
     Active Substance: FLUTICASONE PROPIONATE\SALMETEROL XINAFOATE
     Dosage: STRENGTH 500/50 MICROGRAM/DOSE
     Route: 065
  16. SERETIDE [Concomitant]
     Active Substance: FLUTICASONE PROPIONATE\SALMETEROL XINAFOATE
     Dosage: STRENGTH 500/50 MICROGRAM/DOSE
  17. ALBUTEROL [Concomitant]
     Active Substance: ALBUTEROL
     Dosage: UNK
  18. ALBUTEROL [Concomitant]
     Active Substance: ALBUTEROL
     Dosage: UNK
     Route: 065
  19. ALBUTEROL [Concomitant]
     Active Substance: ALBUTEROL
     Dosage: UNK
     Route: 065
  20. ALBUTEROL [Concomitant]
     Active Substance: ALBUTEROL
     Dosage: UNK
  21. IRBESARTAN [Concomitant]
     Active Substance: IRBESARTAN
     Dosage: UNK
  22. IRBESARTAN [Concomitant]
     Active Substance: IRBESARTAN
     Dosage: UNK
     Route: 065
  23. IRBESARTAN [Concomitant]
     Active Substance: IRBESARTAN
     Dosage: UNK
     Route: 065
  24. IRBESARTAN [Concomitant]
     Active Substance: IRBESARTAN
     Dosage: UNK
  25. ROSUVASTATIN [Concomitant]
     Active Substance: ROSUVASTATIN
     Dosage: UNK
  26. ROSUVASTATIN [Concomitant]
     Active Substance: ROSUVASTATIN
     Dosage: UNK
     Route: 065
  27. ROSUVASTATIN [Concomitant]
     Active Substance: ROSUVASTATIN
     Dosage: UNK
     Route: 065
  28. ROSUVASTATIN [Concomitant]
     Active Substance: ROSUVASTATIN
     Dosage: UNK
  29. LEVOTHYROXINE SODIUM [Concomitant]
     Active Substance: LEVOTHYROXINE SODIUM
     Dosage: UNK
  30. LEVOTHYROXINE SODIUM [Concomitant]
     Active Substance: LEVOTHYROXINE SODIUM
     Dosage: UNK
     Route: 065
  31. LEVOTHYROXINE SODIUM [Concomitant]
     Active Substance: LEVOTHYROXINE SODIUM
     Dosage: UNK
     Route: 065
  32. LEVOTHYROXINE SODIUM [Concomitant]
     Active Substance: LEVOTHYROXINE SODIUM
     Dosage: UNK
  33. INCRUSE ELLIPTA [Concomitant]
     Active Substance: UMECLIDINIUM BROMIDE
     Dosage: UNK
  34. INCRUSE ELLIPTA [Concomitant]
     Active Substance: UMECLIDINIUM BROMIDE
     Dosage: UNK
     Route: 065
  35. INCRUSE ELLIPTA [Concomitant]
     Active Substance: UMECLIDINIUM BROMIDE
     Dosage: UNK
     Route: 065
  36. INCRUSE ELLIPTA [Concomitant]
     Active Substance: UMECLIDINIUM BROMIDE
     Dosage: UNK
  37. POLYETHYLENE GLYCOL 4000 [Concomitant]
     Active Substance: POLYETHYLENE GLYCOL 4000
     Dosage: UNK
  38. POLYETHYLENE GLYCOL 4000 [Concomitant]
     Active Substance: POLYETHYLENE GLYCOL 4000
     Dosage: UNK
     Route: 065
  39. POLYETHYLENE GLYCOL 4000 [Concomitant]
     Active Substance: POLYETHYLENE GLYCOL 4000
     Dosage: UNK
     Route: 065
  40. POLYETHYLENE GLYCOL 4000 [Concomitant]
     Active Substance: POLYETHYLENE GLYCOL 4000
     Dosage: UNK
  41. LORMETAZEPAM [Concomitant]
     Active Substance: LORMETAZEPAM
     Dosage: UNK
  42. LORMETAZEPAM [Concomitant]
     Active Substance: LORMETAZEPAM
     Dosage: UNK
     Route: 065
  43. LORMETAZEPAM [Concomitant]
     Active Substance: LORMETAZEPAM
     Dosage: UNK
     Route: 065
  44. LORMETAZEPAM [Concomitant]
     Active Substance: LORMETAZEPAM
     Dosage: UNK
  45. ACETAMINOPHEN [Concomitant]
     Active Substance: ACETAMINOPHEN
     Dosage: UNK
  46. ACETAMINOPHEN [Concomitant]
     Active Substance: ACETAMINOPHEN
     Dosage: UNK
     Route: 065
  47. ACETAMINOPHEN [Concomitant]
     Active Substance: ACETAMINOPHEN
     Dosage: UNK
     Route: 065
  48. ACETAMINOPHEN [Concomitant]
     Active Substance: ACETAMINOPHEN
     Dosage: UNK
  49. RHINOCORT [Concomitant]
     Active Substance: BUDESONIDE
     Dosage: STRENGTH 64 MICROGRAM/DOSE
  50. RHINOCORT [Concomitant]
     Active Substance: BUDESONIDE
     Dosage: STRENGTH 64 MICROGRAM/DOSE
     Route: 065
  51. RHINOCORT [Concomitant]
     Active Substance: BUDESONIDE
     Dosage: STRENGTH 64 MICROGRAM/DOSE
     Route: 065
  52. RHINOCORT [Concomitant]
     Active Substance: BUDESONIDE
     Dosage: STRENGTH 64 MICROGRAM/DOSE

REACTIONS (4)
  - Subdural haematoma [Not Recovered/Not Resolved]
  - Drug interaction [Recovered/Resolved]
  - Product prescribing error [Recovered/Resolved]
  - Prescribed overdose [Recovered/Resolved]

NARRATIVE: CASE EVENT DATE: 20250908
